FAERS Safety Report 7089390-1 (Version None)
Quarter: 2010Q4

REPORT INFORMATION
  Report Type: 
  Country: None (occurrence: None)
  Receive Date: 20101108
  Receipt Date: 20100917
  Transmission Date: 20110411
  Serious: No
  Sender: FDA-Public Use
  Company Number: US-BAYER-201021580BCC

PATIENT
  Age: 57 Year
  Sex: Female

DRUGS (12)
  1. ALEVE (CAPLET) [Suspect]
     Indication: PAIN
     Dosage: UNIT DOSE: 220 MG
     Route: 048
     Dates: start: 20090101
  2. IBUPROFEN [Concomitant]
     Route: 065
  3. VITAMIN B-12 [Concomitant]
     Route: 065
  4. RIBOFLAVIN TAB [Concomitant]
     Route: 065
  5. MULTI-VITAMIN [Concomitant]
     Route: 065
  6. ADVAIR DISKUS 100/50 [Concomitant]
     Route: 065
  7. SINGULAIR [Concomitant]
     Route: 065
  8. TEAL 24 [Concomitant]
     Route: 065
  9. CLARINEX B [Concomitant]
     Route: 065
  10. EFFEXOR [Concomitant]
     Route: 065
  11. AQUART NOSE SP [Concomitant]
     Route: 065
  12. XOPENEX [Concomitant]
     Route: 065

REACTIONS (1)
  - DRUG SCREEN POSITIVE [None]
